FAERS Safety Report 7885614-9 (Version None)
Quarter: 2011Q4

REPORT INFORMATION
  Report Type: 
  Country: None (occurrence: None)
  Receive Date: 20111102
  Receipt Date: 20111025
  Transmission Date: 20120403
  Serious: Yes (Other)
  Sender: FDA-Public Use
  Company Number: BR-ASTRAZENECA-2011SE65034

PATIENT
  Age: 77 Year
  Sex: Female
  Weight: 62 kg

DRUGS (7)
  1. PROTOS [Concomitant]
     Route: 048
  2. ARADOIS H [Concomitant]
     Dosage: 100/25
     Route: 048
  3. GLIMEPIRIDE [Concomitant]
     Dosage: 4 MG IN THE MORNING/ 2 MG AT DINNER
     Route: 048
  4. ARIMIDEX [Suspect]
     Route: 048
  5. TAMOXIFEN CITRATE [Suspect]
     Route: 048
  6. LEVEMIR [Concomitant]
     Dosage: 10 IU
     Route: 058
  7. GALVUS [Concomitant]
     Route: 048

REACTIONS (11)
  - HEPATIC STEATOSIS [None]
  - BLOOD PRESSURE INCREASED [None]
  - HEPATOMEGALY [None]
  - ARTERIOSCLEROSIS [None]
  - DIABETES MELLITUS INADEQUATE CONTROL [None]
  - BLOOD CHOLESTEROL INCREASED [None]
  - URINARY TRACT INFECTION [None]
  - LOBAR PNEUMONIA [None]
  - HYPOGLYCAEMIA [None]
  - WEIGHT INCREASED [None]
  - BLOOD TRIGLYCERIDES INCREASED [None]
